FAERS Safety Report 9377873 (Version 2)
Quarter: 2013Q3

REPORT INFORMATION
  Report Type: Spontaneous
  Country: US (occurrence: US)
  Receive Date: 20130701
  Receipt Date: 20130711
  Transmission Date: 20140515
  Serious: Yes (Hospitalization)
  Sender: FDA-Public Use
  Company Number: US-GILEAD-2013-0078015

PATIENT
  Sex: Female

DRUGS (3)
  1. LETAIRIS [Suspect]
     Indication: PULMONARY HYPERTENSION
     Dosage: 5 MG, UNK
     Dates: start: 20120423
  2. LETAIRIS [Suspect]
     Indication: SJOGREN^S SYNDROME
  3. LASIX                              /00032601/ [Concomitant]

REACTIONS (2)
  - Pericardial effusion [Recovered/Resolved]
  - Heart rate irregular [Recovered/Resolved]
